FAERS Safety Report 13206453 (Version 1)
Quarter: 2017Q1

REPORT INFORMATION
  Report Type: Spontaneous
  Country: US (occurrence: US)
  Receive Date: 20170208
  Receipt Date: 20170208
  Transmission Date: 20170428
  Serious: Yes (Disabling)
  Sender: FDA-Public Use
  Company Number: None

PATIENT
  Age: 24 Year
  Sex: Female
  Weight: 63.56 kg

DRUGS (1)
  1. MIRENA [Suspect]
     Active Substance: LEVONORGESTREL

REACTIONS (5)
  - Fungal infection [None]
  - Bacterial vaginosis [None]
  - Libido decreased [None]
  - Activities of daily living impaired [None]
  - Discomfort [None]

NARRATIVE: CASE EVENT DATE: 20160708
